FAERS Safety Report 16438815 (Version 1)
Quarter: 2019Q2

REPORT INFORMATION
  Report Type: Spontaneous
  Country: US (occurrence: US)
  Receive Date: 20190617
  Receipt Date: 20190617
  Transmission Date: 20190711
  Serious: No
  Sender: FDA-Public Use
  Company Number: US-PHARMING-PHAUS2019000378

PATIENT

DRUGS (13)
  1. HAEGARDA [Concomitant]
     Active Substance: HUMAN C1-ESTERASE INHIBITOR
  2. BERINERT [Concomitant]
     Active Substance: HUMAN C1-ESTERASE INHIBITOR
  3. LEVOTHYROXINE. [Concomitant]
     Active Substance: LEVOTHYROXINE
  4. EPINEPHRINE. [Concomitant]
     Active Substance: EPINEPHRINE
  5. KALBITOR [Concomitant]
     Active Substance: ECALLANTIDE
  6. ALPRAZOLAM. [Concomitant]
     Active Substance: ALPRAZOLAM
  7. STERILE WATER [Concomitant]
     Active Substance: WATER
  8. HEPARIN [Concomitant]
     Active Substance: HEPARIN SODIUM
  9. SODIUM CHLORIDE. [Concomitant]
     Active Substance: SODIUM CHLORIDE
  10. RUCONEST [Suspect]
     Active Substance: HUMAN C1-ESTERASE INHIBITOR
     Indication: HEREDITARY ANGIOEDEMA
     Dosage: 3400 IU, PRN
     Route: 065
     Dates: start: 20160504
  11. FUROSEMIDE. [Concomitant]
     Active Substance: FUROSEMIDE
  12. DYMISTA [Concomitant]
     Active Substance: AZELASTINE HYDROCHLORIDE\FLUTICASONE PROPIONATE
  13. CYCLOSPORINE. [Concomitant]
     Active Substance: CYCLOSPORINE

REACTIONS (1)
  - Hereditary angioedema [Unknown]
